FAERS Safety Report 4700126-9 (Version None)
Quarter: 2005Q2

REPORT INFORMATION
  Report Type: 
  Country: None (occurrence: None)
  Receive Date: 20050624
  Receipt Date: 20050624
  Transmission Date: 20051028
  Serious: Yes (Hospitalization, Other)
  Sender: FDA-Public Use
  Company Number: None

PATIENT
  Sex: Female
  Weight: 18.1439 kg

DRUGS (2)
  1. CRESTOR [Suspect]
     Indication: ARTHROPATHY
     Dosage: 1 A DAY
     Dates: start: 20040715
  2. BEXTRA [Suspect]
     Indication: BLOOD CHOLESTEROL
     Dosage: 1 A DAY
     Dates: start: 20040715

REACTIONS (4)
  - BLOOD POTASSIUM DECREASED [None]
  - HEPATIC FAILURE [None]
  - MUSCLE DISORDER [None]
  - RENAL FAILURE [None]
